FAERS Safety Report 5460083-7 (Version None)
Quarter: 2007Q3

REPORT INFORMATION
  Report Type: 
  Country: None (occurrence: None)
  Receive Date: 20070919
  Receipt Date: 20070904
  Transmission Date: 20080115
  Serious: Yes (Other)
  Sender: FDA-Public Use
  Company Number: PHBS2007JP14915

PATIENT

DRUGS (2)
  1. DIOVAN [Suspect]
     Dosage: UNK, UNK
     Route: 048
  2. PURSENNID (NCH) [Suspect]
     Route: 065

REACTIONS (1)
  - ERYTHEMA MULTIFORME [None]
